FAERS Safety Report 10136442 (Version 3)
Quarter: 2014Q4

REPORT INFORMATION
  Report Type: Spontaneous
  Country: US (occurrence: None)
  Receive Date: 20140425
  Receipt Date: 20141212
  Transmission Date: 20150528
  Serious: Yes (Hospitalization)
  Sender: FDA-Public Use
  Company Number: UTC-047423

PATIENT
  Age: 45 Year
  Sex: Female
  Weight: 65.8 kg

DRUGS (5)
  1. TRACLEER [Concomitant]
     Active Substance: BOSENTAN\BOSENTAN MONOHYDRATE
  2. REMODULIN [Suspect]
     Active Substance: TREPROSTINIL
     Indication: COR PULMONALE CHRONIC
     Dosage: 76.32 UG/KG (0.053 UG/KG,1 IN 1 MIN)
     Route: 058
     Dates: start: 20020626
  3. ADCIRCA [Suspect]
     Active Substance: TADALAFIL
     Indication: PRODUCT USED FOR UNKNOWN INDICATION
  4. REMODULIN [Suspect]
     Active Substance: TREPROSTINIL
     Indication: PULMONARY HYPERTENSION
     Dosage: 76.32 UG/KG (0.053 UG/KG,1 IN 1 MIN)
     Route: 058
     Dates: start: 20020626
  5. XARELTO [Concomitant]
     Active Substance: RIVAROXABAN

REACTIONS (2)
  - Leg amputation [None]
  - Blood pressure decreased [None]

NARRATIVE: CASE EVENT DATE: 201404
